FAERS Safety Report 11490917 (Version 2)
Quarter: 2015Q3

REPORT INFORMATION
  Report Type: Spontaneous
  Country: US (occurrence: None)
  Receive Date: 20150910
  Receipt Date: 20150921
  Transmission Date: 20151125
  Serious: Yes (Hospitalization, Other)
  Sender: FDA-Public Use
  Company Number: US-MDT-ADR-2015-01757

PATIENT
  Age: 56 Year
  Sex: Male

DRUGS (2)
  1. BUPIVACAINE INTRATHECAL 15.5 MG/ML [Suspect]
     Active Substance: BUPIVACAINE
     Dosage: 1.989 MG/DAY
  2. BACLOFEN INTRATHECAL 240 MCG/ML [Suspect]
     Active Substance: BACLOFEN
     Indication: PAIN
     Dosage: 30.8 MCG/DAY

REACTIONS (6)
  - Feeling abnormal [None]
  - Overdose [None]
  - Malaise [None]
  - Performance status decreased [None]
  - Nausea [None]
  - Hyperhidrosis [None]
